FAERS Safety Report 20437067 (Version 2)
Quarter: 2022Q1

REPORT INFORMATION
  Report Type: Other
  Country: ZA (occurrence: ZA)
  Receive Date: 20220207
  Receipt Date: 20220303
  Transmission Date: 20220423
  Serious: Yes (Other)
  Sender: FDA-Public Use
  Company Number: ZA-002147023-NVSC2022ZA017535

PATIENT
  Age: 82 Year
  Sex: Male

DRUGS (2)
  1. LUCENTIS [Suspect]
     Active Substance: RANIBIZUMAB
     Indication: Neovascular age-related macular degeneration
     Dosage: 0.5 MG, QMO
     Route: 047
     Dates: start: 20210625
  2. LUCENTIS [Suspect]
     Active Substance: RANIBIZUMAB
     Indication: Choroidal neovascularisation

REACTIONS (4)
  - Choroidal neovascularisation [Unknown]
  - Age-related macular degeneration [Unknown]
  - Detachment of retinal pigment epithelium [Unknown]
  - Scar [Unknown]
